FAERS Safety Report 7323792-0 (Version None)
Quarter: 2011Q1

REPORT INFORMATION
  Report Type: 
  Country: None (occurrence: None)
  Receive Date: 20110301
  Receipt Date: 20110223
  Transmission Date: 20110831
  Serious: Yes (Other)
  Sender: FDA-Public Use
  Company Number: US-BRISTOL-MYERS SQUIBB COMPANY-15567514

PATIENT
  Age: 6 Decade
  Sex: Female

DRUGS (4)
  1. ABILIFY [Suspect]
     Dosage: INITIALLY AT 2MG;DOSE INCREASED TO 5MG AND THEN DECREASED TO 2MG
     Dates: start: 20100201
  2. VERAPAMIL [Concomitant]
  3. LISINOPRIL [Concomitant]
  4. THYROID SUPPLEMENT [Concomitant]

REACTIONS (1)
  - CEREBROVASCULAR ACCIDENT [None]
